FAERS Safety Report 5414561-7 (Version None)
Quarter: 2007Q3

REPORT INFORMATION
  Report Type: 
  Country: None (occurrence: None)
  Receive Date: 20070713
  Receipt Date: 20070306
  Transmission Date: 20080115
  Serious: Yes (Other)
  Sender: FDA-Public Use
  Company Number: US-JNJFOC-20061003285

PATIENT
  Age: 28 Year
  Sex: Female
  Weight: 88.4514 kg

DRUGS (3)
  1. ORTHO EVRA [Suspect]
     Indication: CONTRACEPTION
     Dosage: TRANSDERMAL
     Route: 062
     Dates: start: 20030501, end: 20041001
  2. ULTRACET [Concomitant]
  3. NAPROSYN [Concomitant]

REACTIONS (1)
  - DEEP VEIN THROMBOSIS [None]
